FAERS Safety Report 4535069-7 (Version None)
Quarter: 2004Q4

REPORT INFORMATION
  Report Type: 
  Country: None (occurrence: None)
  Receive Date: 20041222
  Receipt Date: 20041220
  Transmission Date: 20050328
  Serious: Yes (Hospitalization)
  Sender: FDA-Public Use
  Company Number: DE-BRISTOL-MYERS SQUIBB COMPANY-12800843

PATIENT
  Sex: Female

DRUGS (2)
  1. REYATAZ [Suspect]
     Indication: HIV INFECTION
  2. SUSTIVA [Suspect]

REACTIONS (2)
  - HYPERBILIRUBINAEMIA [None]
  - OCULAR ICTERUS [None]
